FAERS Safety Report 14829170 (Version 1)
Quarter: 2020Q3

REPORT INFORMATION
  Report Type: Report from Study
  Country: CA (occurrence: CA)
  Receive Date: 20180430
  Receipt Date: 20180430
  Transmission Date: 20201104
  Serious: Yes (Hospitalization, Other)
  Sender: FDA-Public Use
  Company Number: CA-ASTRAZENECA-2017SE00981

PATIENT
  Age: 36 Year
  Sex: Male

DRUGS (13)
  1. DILAUDID [Concomitant]
     Active Substance: HYDROMORPHONE HYDROCHLORIDE
     Route: 065
     Dates: start: 20160518
  2. FUROSEMIDE. [Concomitant]
     Active Substance: FUROSEMIDE
     Route: 065
  3. PREGABALIN. [Concomitant]
     Active Substance: PREGABALIN
     Route: 065
  4. GEMCITABINE. [Suspect]
     Active Substance: GEMCITABINE
     Indication: BLADDER CANCER
     Dosage: 1250 MG (21 DAY CYCLE)
     Route: 042
     Dates: start: 20160527, end: 20160912
  5. PROCHLORPERAZINE. [Concomitant]
     Active Substance: PROCHLORPERAZINE
     Route: 065
     Dates: start: 20160602
  6. PANTOLOC [Concomitant]
     Active Substance: PANTOPRAZOLE SODIUM
     Route: 065
     Dates: start: 20160418
  7. CISPLATIN. [Suspect]
     Active Substance: CISPLATIN
     Indication: BLADDER CANCER
     Dosage: 70 MG (21 DAY CYCLE)
     Route: 042
     Dates: start: 20160527, end: 20160912
  8. MEDI4736 [Suspect]
     Active Substance: DURVALUMAB
     Indication: BLADDER CANCER
     Dosage: 1500 MG (21 DAY CYCLE)
     Route: 042
     Dates: start: 20160527, end: 20161208
  9. STEMETIL [Concomitant]
     Active Substance: PROCHLORPERAZINE
     Route: 065
     Dates: start: 20160602
  10. HYDROMORPHONE [Concomitant]
     Active Substance: HYDROMORPHONE
     Route: 065
     Dates: start: 20160713
  11. TREMELIMUMAB. [Suspect]
     Active Substance: TREMELIMUMAB
     Indication: BLADDER CANCER
     Dosage: 225 MG (21 DAY CYCLE)
     Route: 042
     Dates: start: 20160527, end: 20161109
  12. MARIJUANA [Concomitant]
     Active Substance: CANNABIS SATIVA SUBSP. INDICA TOP
     Route: 065
     Dates: start: 20161208
  13. HYDROMORPH [Concomitant]
     Active Substance: HYDROMORPHONE
     Route: 065
     Dates: start: 20160518

REACTIONS (4)
  - Nausea [Recovered/Resolved]
  - Vomiting [Recovered/Resolved]
  - Blood creatinine increased [Unknown]
  - Colitis [Unknown]

NARRATIVE: CASE EVENT DATE: 20161231
